FAERS Safety Report 7606289-X (Version None)
Quarter: 2011Q3

REPORT INFORMATION
  Report Type: 
  Country: None (occurrence: None)
  Receive Date: 20110713
  Receipt Date: 20110630
  Transmission Date: 20111222
  Serious: Yes (Hospitalization, Other)
  Sender: FDA-Public Use
  Company Number: US-BAYER-201041617NA

PATIENT
  Age: 30 Year
  Sex: Female
  Weight: 95.692 kg

DRUGS (10)
  1. DROSPIRENONE AND ETHINYL ESTRADIOL [Suspect]
     Dosage: UNK
     Dates: start: 20000101, end: 20080101
  2. PHENERGAN HCL [Concomitant]
     Dosage: UNK UNK, PRN
  3. YASMIN [Suspect]
     Dosage: UNK
     Dates: start: 20000101, end: 20080101
  4. PROTONIX [Concomitant]
     Indication: DYSPHAGIA
  5. NEXIUM [Concomitant]
     Indication: DYSPHAGIA
  6. LORTAB [Concomitant]
     Dosage: UNK UNK, PRN
  7. TYLENOL-500 [Concomitant]
     Dosage: UNK UNK, PRN
  8. YAZ [Suspect]
     Dosage: UNK
     Dates: start: 20000101, end: 20080101
  9. PROTONIX [Concomitant]
     Indication: GASTROOESOPHAGEAL REFLUX DISEASE
     Dosage: UNK UNK, PRN
  10. NEXIUM [Concomitant]
     Indication: GASTROOESOPHAGEAL REFLUX DISEASE
     Dosage: UNK UNK, PRN

REACTIONS (3)
  - GALLBLADDER DISORDER [None]
  - CHOLECYSTITIS CHRONIC [None]
  - GASTRIC DISORDER [None]
